FAERS Safety Report 22636210 (Version 2)
Quarter: 2023Q2

REPORT INFORMATION
  Report Type: Spontaneous
  Country: US (occurrence: US)
  Receive Date: 20230623
  Receipt Date: 20230629
  Transmission Date: 20230721
  Serious: No
  Sender: FDA-Public Use
  Company Number: US-PFIZER INC-PV202300108734

PATIENT
  Age: 63 Year
  Sex: Female

DRUGS (2)
  1. IBRANCE [Interacting]
     Active Substance: PALBOCICLIB
     Dosage: UNK
  2. ATORVASTATIN [Interacting]
     Active Substance: ATORVASTATIN
     Dosage: UNK

REACTIONS (2)
  - Abdominal distension [Unknown]
  - Drug interaction [Unknown]
